FAERS Safety Report 17306249 (Version 1)
Quarter: 2020Q1

REPORT INFORMATION
  Report Type: Spontaneous
  Country: US (occurrence: US)
  Receive Date: 20200123
  Receipt Date: 20200123
  Transmission Date: 20200409
  Serious: No
  Sender: FDA-Public Use
  Company Number: US-US WORLDMEDS, LLC-USW201812-001923

PATIENT
  Sex: Female

DRUGS (1)
  1. CORGARD [Suspect]
     Active Substance: NADOLOL

REACTIONS (1)
  - Drug hypersensitivity [Unknown]
